FAERS Safety Report 7986367-6 (Version None)
Quarter: 2011Q4

REPORT INFORMATION
  Report Type: 
  Country: None (occurrence: None)
  Receive Date: 20111216
  Receipt Date: 20110207
  Transmission Date: 20120403
  Serious: No
  Sender: FDA-Public Use
  Company Number: US-GLAXOSMITHKLINE-A0912275A

PATIENT
  Age: 48 Year
  Sex: Male

DRUGS (3)
  1. COREG CR [Suspect]
     Indication: HYPERTENSION
     Dosage: 20MG THREE TIMES PER DAY
     Route: 048
     Dates: start: 20110207
  2. ZIAC [Concomitant]
  3. DOXAZOSIN MESYLATE [Concomitant]

REACTIONS (4)
  - OEDEMA PERIPHERAL [None]
  - DRUG INEFFECTIVE [None]
  - VISION BLURRED [None]
  - ADVERSE DRUG REACTION [None]
